FAERS Safety Report 7964510-2 (Version None)
Quarter: 2011Q4

REPORT INFORMATION
  Report Type: 
  Country: None (occurrence: None)
  Receive Date: 20111208
  Receipt Date: 20111201
  Transmission Date: 20120403
  Serious: Yes (Hospitalization)
  Sender: FDA-Public Use
  Company Number: US-VERTEX PHARMACEUTICALS INC.-AE-2011-004311

PATIENT
  Sex: Female
  Weight: 61.4 kg

DRUGS (5)
  1. INCIVEK [Suspect]
     Indication: HEPATITIS C
     Route: 048
     Dates: start: 20111114
  2. PEGASYS [Concomitant]
     Indication: HEPATITIS C
     Route: 058
     Dates: start: 20111114
  3. XANAX [Concomitant]
     Route: 048
  4. RIBASPHERE [Concomitant]
     Indication: HEPATITIS C
     Route: 048
     Dates: start: 20111114
  5. URSODIOL [Concomitant]
     Route: 048

REACTIONS (5)
  - CONTUSION [None]
  - ASTHENIA [None]
  - VISION BLURRED [None]
  - FALL [None]
  - BALANCE DISORDER [None]
